FAERS Safety Report 7002020-X (Version None)
Quarter: 2010Q3

REPORT INFORMATION
  Report Type: 
  Country: None (occurrence: None)
  Receive Date: 20100920
  Receipt Date: 20100914
  Transmission Date: 20110219
  Serious: Yes (Disabling)
  Sender: FDA-Public Use
  Company Number: US-B.I. PHARMACEUTICALS,INC./RIDGEFIELD-2010-BP-09389PF

PATIENT
  Age: 83 Year
  Sex: Female

DRUGS (7)
  1. SPIRIVA [Suspect]
     Indication: EMPHYSEMA
     Dosage: 18 MCG
     Route: 055
     Dates: start: 20040101
  2. SPIRIVA [Suspect]
     Indication: BRONCHITIS CHRONIC
  3. MULTAQ [Concomitant]
     Indication: ARRHYTHMIA
     Dosage: 800 MG
  4. POTASSIUM CHLORIDE [Concomitant]
     Indication: ARRHYTHMIA
  5. DIGOXIN [Concomitant]
     Indication: ARRHYTHMIA
  6. PRAVASTATIN [Concomitant]
     Indication: BLOOD CHOLESTEROL INCREASED
  7. OMEPRAZOLE [Concomitant]
     Indication: GASTROOESOPHAGEAL REFLUX DISEASE

REACTIONS (3)
  - BRONCHIECTASIS [None]
  - COUGH [None]
  - DRUG INEFFECTIVE [None]
